FAERS Safety Report 5447656-2 (Version None)
Quarter: 2007Q3

REPORT INFORMATION
  Report Type: 
  Country: None (occurrence: None)
  Receive Date: 20070910
  Receipt Date: 20070828
  Transmission Date: 20080115
  Serious: Yes (Other)
  Sender: FDA-Public Use
  Company Number: PHEH2007US11406

PATIENT
  Age: 54 Year
  Sex: Female
  Weight: 80.725 kg

DRUGS (3)
  1. AMLODIPINE BESYLATE AND BENAZEPRIL HCL [Suspect]
     Dosage: 10/20MG, QD
     Route: 048
     Dates: start: 20070701, end: 20070801
  2. LOTREL [Suspect]
  3. ASPIRIN [Concomitant]
     Dosage: 325 MG, QOD

REACTIONS (8)
  - ASTHENIA [None]
  - DIZZINESS [None]
  - FATIGUE [None]
  - HEADACHE [None]
  - HEART RATE INCREASED [None]
  - HYPOAESTHESIA FACIAL [None]
  - NAUSEA [None]
  - VOMITING [None]
